FAERS Safety Report 24904924 (Version 2)
Quarter: 2025Q2

REPORT INFORMATION
  Report Type: Spontaneous
  Country: US (occurrence: US)
  Receive Date: 20250130
  Receipt Date: 20250626
  Transmission Date: 20250716
  Serious: Yes (Hospitalization, Other)
  Sender: CB FLEET
  Company Number: US-PRESTIGE-202501-US-000393

PATIENT
  Age: 74 Year
  Sex: Male

DRUGS (1)
  1. FLEET ENEMA [Suspect]
     Active Substance: SODIUM PHOSPHATE, DIBASIC\SODIUM PHOSPHATE, MONOBASIC
     Indication: Constipation
     Route: 054

REACTIONS (5)
  - Rectal perforation [Recovered/Resolved]
  - Anorectal discomfort [Recovered/Resolved]
  - Proctalgia [Recovered/Resolved]
  - Multiple use of single-use product [None]
  - Wrong technique in product usage process [None]
